FAERS Safety Report 4531269-0 (Version None)
Quarter: 2004Q4

REPORT INFORMATION
  Report Type: 
  Country: None (occurrence: None)
  Receive Date: 20041126
  Receipt Date: 20040825
  Transmission Date: 20050328
  Serious: Yes (Other)
  Sender: FDA-Public Use
  Company Number: 04-330-0985

PATIENT
  Age: 47 Year
  Sex: Male
  Weight: 81.6475 kg

DRUGS (1)
  1. PAMIDRONATE 90MG  (LYO) BEN VENUE LABS [Suspect]
     Indication: ACCIDENTAL EXPOSURE
     Dosage: 90 MG IN 250 ML 0.9% NACL
     Dates: start: 20040825

REACTIONS (1)
  - PRURITUS [None]
